FAERS Safety Report 5080618-6 (Version None)
Quarter: 2006Q3

REPORT INFORMATION
  Report Type: 
  Country: None (occurrence: None)
  Receive Date: 20060814
  Receipt Date: 20060814
  Transmission Date: 20061208
  Serious: Yes (Other)
  Sender: FDA-Public Use
  Company Number: None

PATIENT
  Sex: Female

DRUGS (1)
  1. OPTIRAY 350 [Suspect]
     Dosage: SEE IMAGE
     Route: 042

REACTIONS (3)
  - EYE SWELLING [None]
  - PRURITUS [None]
  - URTICARIA [None]
